FAERS Safety Report 4757295-4 (Version None)
Quarter: 2005Q3

REPORT INFORMATION
  Report Type: 
  Country: None (occurrence: None)
  Receive Date: 20050829
  Receipt Date: 20050818
  Transmission Date: 20060218
  Serious: Yes (Other)
  Sender: FDA-Public Use
  Company Number: 232843K05USA

PATIENT
  Age: 58 Year
  Sex: Female

DRUGS (1)
  1. REBIF [Suspect]
     Indication: MULTIPLE SCLEROSIS
     Dosage: 22 MCG, 3 IN WEEKS, SUBCUTANEOUS
     Route: 058
     Dates: start: 20050606, end: 20050601

REACTIONS (8)
  - BLOOD HOMOCYSTEINE INCREASED [None]
  - ENDOTHELIAL DYSFUNCTION [None]
  - HAEMANGIOMA OF SKIN [None]
  - INJECTION SITE ERYTHEMA [None]
  - INJECTION SITE HAEMORRHAGE [None]
  - PETECHIAE [None]
  - SKIN DISCOLOURATION [None]
  - THROMBOSIS [None]
